FAERS Safety Report 6206016-7 (Version None)
Quarter: 2009Q2

REPORT INFORMATION
  Report Type: 
  Country: None (occurrence: None)
  Receive Date: 20090528
  Receipt Date: 20090520
  Transmission Date: 20091009
  Serious: Yes (Hospitalization, Other)
  Sender: FDA-Public Use
  Company Number: CO-ELI_LILLY_AND_COMPANY-CO200905004764

PATIENT
  Age: 49 Year
  Sex: Female

DRUGS (8)
  1. BYETTA [Suspect]
     Indication: TYPE 2 DIABETES MELLITUS
     Dosage: 10 UG, 2/D
     Route: 058
     Dates: start: 20080606
  2. COUMADIN [Concomitant]
     Dosage: 2.5 MG, UNKNOWN
     Route: 065
  3. COUMADIN [Concomitant]
     Dosage: 5 MG, UNKNOWN
     Route: 065
  4. PLAVIX [Concomitant]
     Dosage: UNK, UNKNOWN
     Route: 065
  5. EUTIROX [Concomitant]
     Dosage: UNK, UNKNOWN
     Route: 065
  6. PANTOPRAZOL [Concomitant]
     Dosage: UNK, UNKNOWN
     Route: 065
  7. CRESTOR [Concomitant]
     Dosage: UNK, UNKNOWN
     Route: 065
  8. FONDAPARINUX [Concomitant]
     Dosage: UNK, UNKNOWN
     Route: 065

REACTIONS (5)
  - APPLICATION SITE INDURATION [None]
  - HYPOGLYCAEMIA [None]
  - INJECTION SITE PAIN [None]
  - PAIN IN EXTREMITY [None]
  - THROMBOSIS [None]
